FAERS Safety Report 14984826 (Version 1)
Quarter: 2018Q2

REPORT INFORMATION
  Report Type: Spontaneous
  Country: US (occurrence: US)
  Receive Date: 20180607
  Receipt Date: 20180607
  Transmission Date: 20180711
  Serious: No
  Sender: FDA-Public Use
  Company Number: US-FOUNDATIONCONSUMERHC-2018-US-005795

PATIENT
  Age: 42 Year
  Sex: Female
  Weight: 106.6 kg

DRUGS (4)
  1. UNSPECIFIED FENUGREEK [Concomitant]
  2. PLAN B ONE-STEP [Suspect]
     Active Substance: LEVONORGESTREL
     Indication: POST COITAL CONTRACEPTION
     Dosage: 1 DOSE X 1
     Route: 048
     Dates: start: 20180407, end: 20180407
  3. VITEX [Concomitant]
  4. UNSPECIFIED GLUTATHIONE [Concomitant]

REACTIONS (4)
  - Adnexa uteri pain [Not Recovered/Not Resolved]
  - Headache [Recovered/Resolved]
  - Vaginal discharge [Not Recovered/Not Resolved]
  - Breast pain [Not Recovered/Not Resolved]

NARRATIVE: CASE EVENT DATE: 20180407
